FAERS Safety Report 8492349-0 (Version None)
Quarter: 2012Q3

REPORT INFORMATION
  Report Type: 
  Country: None (occurrence: None)
  Receive Date: 20120706
  Receipt Date: 20120628
  Transmission Date: 20120928
  Serious: Yes (Other)
  Sender: FDA-Public Use
  Company Number: US-ROCHE-784667

PATIENT
  Sex: Female
  Weight: 59.02 kg

DRUGS (1)
  1. ACCUTANE [Suspect]
     Indication: ACNE
     Dosage: 40 MG TO 80 MG
     Route: 048
     Dates: start: 20021216, end: 20030820

REACTIONS (6)
  - COLITIS ULCERATIVE [None]
  - EMOTIONAL DISTRESS [None]
  - IRRITABLE BOWEL SYNDROME [None]
  - CHEILITIS [None]
  - DEPRESSION [None]
  - INFLAMMATORY BOWEL DISEASE [None]
